FAERS Safety Report 8861694 (Version 1)
Quarter: 2012Q4

REPORT INFORMATION
  Report Type: 
  Country: US (occurrence: US)
  Receive Date: 20121025
  Receipt Date: 20121025
  Transmission Date: 20130627
  Serious: No
  Sender: FDA-Public Use
  Company Number: US-AMGEN-USASP2012019897

PATIENT
  Sex: Female
  Weight: 99 kg

DRUGS (9)
  1. ENBREL [Suspect]
     Indication: PRODUCT USED FOR UNKNOWN INDICATION
     Dosage: 50 mg, qwk
     Route: 058
  2. ABILIFY [Concomitant]
     Dosage: 2 mg, UNK
  3. VITAMIN D /00107901/ [Concomitant]
     Dosage: 2000 IU, UNK
  4. SULFASALAZIN [Concomitant]
     Dosage: 500 mg, UNK
  5. CYMBALTA [Concomitant]
     Dosage: 60 mg, UNK
  6. LUNESTA [Concomitant]
     Dosage: 3 mg, UNK
  7. LYRICA [Concomitant]
     Dosage: 300 mg, UNK
  8. FISH OIL [Concomitant]
  9. APLENZIN [Concomitant]
     Dosage: 174 mg, UNK

REACTIONS (1)
  - Sinusitis [Recovered/Resolved]
